FAERS Safety Report 10264927 (Version 1)
Quarter: 2014Q2

REPORT INFORMATION
  Report Type: Spontaneous
  Country: CN (occurrence: None)
  Receive Date: 20140624
  Receipt Date: 20140624
  Transmission Date: 20141212
  Serious: Yes (Other)
  Sender: FDA-Public Use
  Company Number: 2014JUB00011

PATIENT
  Age: 28 Year
  Sex: Female

DRUGS (1)
  1. PREDNISONE [Suspect]
     Indication: SJOGREN^S SYNDROME
     Dosage: 10 MG, 1X/DAY

REACTIONS (12)
  - Cardiac hypertrophy [None]
  - Systolic hypertension [None]
  - Mitral valve incompetence [None]
  - Mitral valve prolapse [None]
  - Cardiac valve vegetation [None]
  - Cough [None]
  - Pyrexia [None]
  - Bacterial infection [None]
  - Rash [None]
  - Erythema [None]
  - Systemic lupus erythematosus [None]
  - Dyspnoea [None]
